FAERS Safety Report 23971765 (Version 1)
Quarter: 2024Q2

REPORT INFORMATION
  Report Type: Spontaneous
  Country: US (occurrence: None)
  Receive Date: 20240612
  Receipt Date: 20240612
  Transmission Date: 20240716
  Serious: Yes (Other)
  Sender: FDA-Public Use
  Company Number: None

PATIENT
  Age: 40 Year
  Sex: Female

DRUGS (8)
  1. HUMIRA [Suspect]
     Active Substance: ADALIMUMAB
     Indication: Hidradenitis
     Dosage: OTHER FREQUENCY : WEEKLY;?
     Route: 058
     Dates: start: 20231201, end: 20240501
  2. METFORMIN [Concomitant]
     Active Substance: METFORMIN HYDROCHLORIDE
  3. noreth-ee [Concomitant]
  4. OMEPRAZOLE [Concomitant]
     Active Substance: DONEPEZIL HYDROCHLORIDE\OMEPRAZOLE\OMEPRAZOLE MAGNESIUM
  5. PHENTERMINE [Concomitant]
     Active Substance: PHENTERMINE
  6. PRAVASTATIN [Concomitant]
     Active Substance: PRAVASTATIN
  7. TOPIRAMATE [Concomitant]
     Active Substance: TOPIRAMATE
  8. TRULICITY [Concomitant]
     Active Substance: DULAGLUTIDE

REACTIONS (6)
  - Visual impairment [None]
  - Alopecia [None]
  - Headache [None]
  - Abdominal distension [None]
  - Swelling face [None]
  - Therapy cessation [None]

NARRATIVE: CASE EVENT DATE: 20240612
